FAERS Safety Report 4616085-3 (Version None)
Quarter: 2005Q1

REPORT INFORMATION
  Report Type: 
  Country: None (occurrence: None)
  Receive Date: 20050321
  Receipt Date: 20050310
  Transmission Date: 20050727
  Serious: Yes (Death)
  Sender: FDA-Public Use
  Company Number: 2005-03-0750

PATIENT
  Age: 75 Year
  Sex: Female

DRUGS (1)
  1. NASONEX [Suspect]
     Indication: DRUG USE FOR UNKNOWN INDICATION
     Dosage: NASAL SPRAY
     Route: 045

REACTIONS (2)
  - CEREBROVASCULAR ACCIDENT [None]
  - EPISTAXIS [None]
